FAERS Safety Report 20945993 (Version 3)
Quarter: 2022Q3

REPORT INFORMATION
  Report Type: Spontaneous
  Country: US (occurrence: US)
  Receive Date: 20220610
  Receipt Date: 20220825
  Transmission Date: 20221027
  Serious: No
  Sender: FDA-Public Use
  Company Number: US-CELGENE-USA-20220302327

PATIENT
  Age: 85 Year
  Sex: Female
  Weight: 93.44 kg

DRUGS (2)
  1. REVLIMID [Suspect]
     Active Substance: LENALIDOMIDE
     Indication: Plasma cell myeloma
     Dosage: 5 MILLIGRAM
     Route: 048
     Dates: start: 202110
  2. REVLIMID [Suspect]
     Active Substance: LENALIDOMIDE
     Dosage: 5 MILLIGRAM, D1-21 Q28 DAYS.
     Route: 048
     Dates: start: 20211007

REACTIONS (8)
  - Tachycardia [Recovered/Resolved with Sequelae]
  - Nausea [Recovered/Resolved]
  - Diarrhoea [Recovering/Resolving]
  - Stress [Recovering/Resolving]
  - Drug tolerance [Recovering/Resolving]
  - Heart rate irregular [Recovering/Resolving]
  - Heart rate decreased [Recovering/Resolving]
  - Peripheral swelling [Recovering/Resolving]

NARRATIVE: CASE EVENT DATE: 20220601
